FAERS Safety Report 12907740 (Version 1)
Quarter: 2016Q4

REPORT INFORMATION
  Report Type: Spontaneous
  Country: US (occurrence: US)
  Receive Date: 20161102
  Receipt Date: 20161102
  Transmission Date: 20170207
  Serious: Yes (Disabling, Other)
  Sender: FDA-Public Use
  Company Number: None

PATIENT
  Age: 20 Year
  Sex: Female
  Weight: 52 kg

DRUGS (3)
  1. NEXPLANON [Suspect]
     Active Substance: ETONOGESTREL
  2. CITALOPRAM [Concomitant]
     Active Substance: CITALOPRAM HYDROBROMIDE
  3. CONTRACEPTIVE PILL [Concomitant]

REACTIONS (5)
  - Headache [None]
  - Fatigue [None]
  - Anaemia [None]
  - Haemorrhage [None]
  - Depression [None]

NARRATIVE: CASE EVENT DATE: 20161102
